FAERS Safety Report 5393769-3 (Version None)
Quarter: 2007Q3

REPORT INFORMATION
  Report Type: 
  Country: None (occurrence: None)
  Receive Date: 20070723
  Receipt Date: 20070718
  Transmission Date: 20080115
  Serious: Yes (Death, Hospitalization)
  Sender: FDA-Public Use
  Company Number: FR-ASTRAZENECA-2007CG01081

PATIENT
  Age: 27626 Day
  Sex: Female

DRUGS (6)
  1. FASLODEX [Suspect]
     Indication: BREAST CANCER FEMALE
     Route: 030
     Dates: start: 20070604, end: 20070702
  2. DAFALGAN CODEINE [Concomitant]
     Indication: OSTEOARTHRITIS
     Route: 048
     Dates: start: 20040101
  3. TAMIK [Concomitant]
     Indication: MIGRAINE
     Dates: start: 19970101
  4. ACTONEL [Concomitant]
     Indication: OSTEOPOROSIS
     Dates: start: 20040101
  5. CALCIUM CHLORIDE [Concomitant]
     Indication: OSTEOPOROSIS
     Dates: start: 20040101
  6. VITAMIN D [Concomitant]
     Indication: OSTEOPOROSIS
     Dates: start: 20040101

REACTIONS (1)
  - PULMONARY EMBOLISM [None]
